FAERS Safety Report 6440684-X (Version None)
Quarter: 2009Q4

REPORT INFORMATION
  Report Type: 
  Country: None (occurrence: None)
  Receive Date: 20091116
  Receipt Date: 20091106
  Transmission Date: 20100525
  Serious: Yes (Hospitalization, Other)
  Sender: FDA-Public Use
  Company Number: US-BIOGENIDEC-2006BI003459

PATIENT
  Age: 43 Year
  Sex: Female

DRUGS (3)
  1. AVONEX [Suspect]
     Indication: MULTIPLE SCLEROSIS
     Route: 030
     Dates: start: 20050301
  2. AVONEX [Suspect]
     Route: 030
     Dates: start: 19980426
  3. AVONEX [Suspect]
     Route: 030
     Dates: start: 19990501, end: 20050301

REACTIONS (3)
  - BREAST CANCER [None]
  - PAIN [None]
  - UTERINE LEIOMYOMA [None]
